FAERS Safety Report 11703950 (Version 2)
Quarter: 2015Q4

REPORT INFORMATION
  Report Type: Report from Study
  Country: CO (occurrence: CO)
  Receive Date: 20151106
  Receipt Date: 20151204
  Transmission Date: 20160304
  Serious: Yes (Death, Other)
  Sender: FDA-Public Use
  Company Number: CO-ASTRAZENECA-2015SF06763

PATIENT
  Age: 72 Year
  Sex: Male
  Weight: 45 kg

DRUGS (1)
  1. BRILINTA [Suspect]
     Active Substance: TICAGRELOR
     Indication: INFARCTION
     Route: 048
     Dates: start: 20150531, end: 20150828

REACTIONS (2)
  - Infarction [Unknown]
  - Death [Fatal]

NARRATIVE: CASE EVENT DATE: 20150828
